FAERS Safety Report 9618677 (Version 3)
Quarter: 2013Q4

REPORT INFORMATION
  Report Type: Spontaneous
  Country: US (occurrence: US)
  Receive Date: 20131014
  Receipt Date: 20131231
  Transmission Date: 20140711
  Serious: Yes (Hospitalization, Other)
  Sender: FDA-Public Use
  Company Number: US-SA-2013SA097838

PATIENT
  Age: 76 Year
  Sex: Female
  Weight: 71.67 kg

DRUGS (17)
  1. LANTUS SOLOSTAR [Suspect]
     Indication: TYPE 2 DIABETES MELLITUS
     Dosage: 40 U IN AM AND 20 U IN PM
     Route: 058
  2. LANTUS SOLOSTAR [Suspect]
     Indication: TYPE 2 DIABETES MELLITUS
     Dosage: 40 U IN AM AND 20 U IN PM
     Route: 058
  3. LANTUS SOLOSTAR [Suspect]
     Indication: TYPE 2 DIABETES MELLITUS
     Dosage: 40 U IN AM AND 20 U IN PM
     Route: 058
  4. SOLOSTAR [Concomitant]
     Indication: TYPE 2 DIABETES MELLITUS
  5. SOLOSTAR [Concomitant]
     Indication: TYPE 2 DIABETES MELLITUS
  6. SOLOSTAR [Concomitant]
     Indication: TYPE 2 DIABETES MELLITUS
  7. PINDOLOL [Concomitant]
     Indication: CARDIAC DISORDER
     Route: 065
     Dates: start: 201308
  8. FUROSEMIDE [Concomitant]
     Indication: CARDIAC FAILURE CONGESTIVE
     Route: 065
     Dates: start: 201308
  9. LISINOPRIL [Concomitant]
     Route: 065
  10. ISORBIDE [Concomitant]
     Route: 065
  11. PLAVIX [Concomitant]
     Route: 065
  12. ASPIRIN [Concomitant]
  13. LIPITOR [Concomitant]
     Dosage: DOSE - 40
     Route: 065
  14. ALPRAZOLAM [Concomitant]
  15. ZOLOFT [Concomitant]
  16. ANASTROZOLE [Concomitant]
  17. POTASSIUM [Concomitant]

REACTIONS (5)
  - Arteriosclerosis coronary artery [Not Recovered/Not Resolved]
  - Cardiac failure congestive [Not Recovered/Not Resolved]
  - Device occlusion [Unknown]
  - Malaise [Unknown]
  - Visual impairment [Unknown]
